FAERS Safety Report 9861017 (Version 2)
Quarter: 2014Q1

REPORT INFORMATION
  Report Type: Spontaneous
  Country: IT (occurrence: None)
  Receive Date: 20140130
  Receipt Date: 20140331
  Transmission Date: 20141002
  Serious: Yes (Other)
  Sender: FDA-Public Use
  Company Number: KAD201401-000088

PATIENT
  Age: 49 Year
  Sex: Female

DRUGS (2)
  1. ANASTROZOLE [Suspect]
     Indication: BREAST CANCER
  2. TRASTUZUMAB [Suspect]
     Indication: BREAST CANCER

REACTIONS (4)
  - Treatment failure [None]
  - Metastases to liver [None]
  - Breast cancer metastatic [None]
  - Malignant neoplasm progression [None]
